FAERS Safety Report 9990780 (Version 1)
Quarter: 2014Q1

REPORT INFORMATION
  Report Type: Spontaneous
  Country: US (occurrence: None)
  Receive Date: 20140307
  Receipt Date: 20140307
  Transmission Date: 20141002
  Serious: Yes (Hospitalization)
  Sender: FDA-Public Use
  Company Number: None

PATIENT
  Age: 81 Year
  Sex: Male

DRUGS (2)
  1. PRAVASTATIN [Suspect]
     Route: 048
     Dates: start: 20110215, end: 20130315
  2. MULTIVITAMINS [Suspect]
     Route: 048
     Dates: start: 20130301, end: 20130318

REACTIONS (2)
  - Asthenia [None]
  - Blood creatine phosphokinase increased [None]
